FAERS Safety Report 5738178-X (Version None)
Quarter: 2008Q2

REPORT INFORMATION
  Report Type: 
  Country: None (occurrence: None)
  Receive Date: 20080514
  Receipt Date: 20080501
  Transmission Date: 20081010
  Serious: Yes (Death, Other)
  Sender: FDA-Public Use
  Company Number: JP-BRISTOL-MYERS SQUIBB COMPANY-14110506

PATIENT
  Age: 60 Year
  Sex: Female

DRUGS (2)
  1. TAXOL [Suspect]
     Indication: BREAST CANCER
     Dosage: INITIATED ON 09DEC,16DEC07. 90MG,3/1MNTH FM 30SEP06-22DEC07(43DYS)
     Route: 041
     Dates: start: 20071222, end: 20071222
  2. ZOMETA [Concomitant]
     Route: 042
     Dates: start: 20060930

REACTIONS (3)
  - NEUTROPENIA [None]
  - PNEUMONIA [None]
  - PULMONARY HAEMORRHAGE [None]
